FAERS Safety Report 9435159 (Version 1)
Quarter: 2013Q3

REPORT INFORMATION
  Report Type: Spontaneous
  Country: GB (occurrence: GB)
  Receive Date: 20130801
  Receipt Date: 20130801
  Transmission Date: 20140515
  Serious: Yes (Hospitalization, Disabling)
  Sender: FDA-Public Use
  Company Number: GB-JNJFOC-20130715895

PATIENT
  Age: 54 Year
  Sex: Female

DRUGS (8)
  1. XARELTO [Suspect]
     Indication: THROMBOSIS PROPHYLAXIS
     Route: 048
     Dates: start: 20130521, end: 20130522
  2. XARELTO [Suspect]
     Indication: HIP ARTHROPLASTY
     Route: 048
     Dates: start: 20130521, end: 20130522
  3. XARELTO [Suspect]
     Indication: ANTICOAGULANT THERAPY
     Route: 048
     Dates: start: 20130521, end: 20130522
  4. VENTOLIN [Concomitant]
     Indication: ASTHMA
     Route: 055
  5. PREMARIN [Concomitant]
     Indication: HORMONE REPLACEMENT THERAPY
     Route: 048
  6. SERETIDE [Concomitant]
     Indication: ASTHMA
     Route: 055
  7. LEVOTHYROXINE [Concomitant]
     Indication: HYPOTHYROIDISM
     Route: 048
  8. LYMECYCLINE [Concomitant]
     Indication: ACNE
     Route: 048

REACTIONS (2)
  - Sinus headache [Not Recovered/Not Resolved]
  - Cluster headache [Not Recovered/Not Resolved]
